FAERS Safety Report 8778761 (Version 2)
Quarter: 2012Q4

REPORT INFORMATION
  Report Type: Report from Study
  Country: AU (occurrence: AU)
  Receive Date: 20120912
  Receipt Date: 20120912
  Transmission Date: 20130627
  Serious: Yes (Hospitalization, Other)
  Sender: FDA-Public Use
  Company Number: PHHY2012AU070672

PATIENT
  Age: 21 Year
  Sex: Male

DRUGS (4)
  1. CLOZARIL [Suspect]
     Indication: SCHIZOPHRENIA
     Dosage: 75 mg, UNK
     Route: 048
     Dates: start: 20120806
  2. CLOZARIL [Suspect]
     Dosage: 125 mg, UNK
     Route: 048
     Dates: end: 20120810
  3. PALIPERIDONE [Concomitant]
     Indication: SCHIZOPHRENIA
     Dosage: 6 mg, Mane
     Route: 048
     Dates: end: 20120811
  4. PALIPERIDONE [Concomitant]
     Dosage: 100 mg monthly
     Route: 030
     Dates: start: 20120710

REACTIONS (6)
  - Troponin increased [Recovered/Resolved]
  - Pericardial effusion [Unknown]
  - Blood creatine phosphokinase increased [Recovered/Resolved]
  - Pericarditis [Recovered/Resolved with Sequelae]
  - Chest pain [Recovered/Resolved]
  - Electrocardiogram ST segment elevation [Recovered/Resolved]
